FAERS Safety Report 9249513 (Version 3)
Quarter: 2015Q1

REPORT INFORMATION
  Report Type: Spontaneous
  Country: US (occurrence: US)
  Receive Date: 20130423
  Receipt Date: 20150302
  Transmission Date: 20150721
  Serious: Yes (Disabling, Other)
  Sender: FDA-Public Use
  Company Number: US-009507513-1304USA010629

PATIENT
  Sex: Male

DRUGS (2)
  1. FINASTERIDE. [Suspect]
     Active Substance: FINASTERIDE
     Dosage: 5 MG, UNK
     Dates: start: 20100212, end: 20100317
  2. PROPECIA [Suspect]
     Active Substance: FINASTERIDE
     Indication: ALOPECIA
     Dosage: 1 MG, UNK
     Route: 048
     Dates: start: 200206, end: 2003

REACTIONS (14)
  - Depression suicidal [Not Recovered/Not Resolved]
  - Groin pain [Unknown]
  - Testicular atrophy [Unknown]
  - Erectile dysfunction [Unknown]
  - Brain injury [Unknown]
  - Loss of libido [Unknown]
  - Testicular pain [Unknown]
  - Cognitive disorder [Unknown]
  - Semen volume decreased [Unknown]
  - Sexual dysfunction [Not Recovered/Not Resolved]
  - Penile size reduced [Unknown]
  - Penis injury [Unknown]
  - Hormone level abnormal [Unknown]
  - Anxiety [Not Recovered/Not Resolved]

NARRATIVE: CASE EVENT DATE: 200210
